FAERS Safety Report 6582987-4 (Version None)
Quarter: 2010Q1

REPORT INFORMATION
  Report Type: 
  Country: None (occurrence: None)
  Receive Date: 20100216
  Receipt Date: 20100204
  Transmission Date: 20100710
  Serious: Yes (Other)
  Sender: FDA-Public Use
  Company Number: US-WYE-H10626709

PATIENT
  Age: 22 Year
  Sex: Male

DRUGS (1)
  1. PRISTIQ [Suspect]
     Dosage: UNKNOWN
     Dates: start: 20090301, end: 20090101

REACTIONS (2)
  - MANIA [None]
  - MENTAL DISORDER [None]
